FAERS Safety Report 12137842 (Version 1)
Quarter: 2016Q1

REPORT INFORMATION
  Report Type: Spontaneous
  Country: US (occurrence: US)
  Receive Date: 20160302
  Receipt Date: 20160302
  Transmission Date: 20160526
  Serious: No
  Sender: FDA-Public Use
  Company Number: US-TAKEDA-2016TUS003113

PATIENT
  Age: 6 Month
  Sex: Male

DRUGS (1)
  1. PREVACID SOLUTAB [Suspect]
     Active Substance: LANSOPRAZOLE
     Indication: GASTROOESOPHAGEAL REFLUX DISEASE
     Dosage: UNK UNK, QD
     Route: 048
     Dates: start: 201510

REACTIONS (3)
  - Wrong technique in product usage process [Not Recovered/Not Resolved]
  - Drug prescribing error [Not Recovered/Not Resolved]
  - No adverse event [Unknown]

NARRATIVE: CASE EVENT DATE: 201510
